FAERS Safety Report 21614433 (Version 1)
Quarter: 2022Q4

REPORT INFORMATION
  Report Type: Report from Study
  Country: US (occurrence: US)
  Receive Date: 20221118
  Receipt Date: 20221118
  Transmission Date: 20230113
  Serious: Yes (Other)
  Sender: FDA-Public Use
  Company Number: US-ABBVIE-4204686

PATIENT
  Sex: Male

DRUGS (1)
  1. HUMIRA [Suspect]
     Active Substance: ADALIMUMAB
     Indication: Ankylosing spondylitis
     Dosage: CITRATE FREEE
     Route: 058

REACTIONS (4)
  - Spinal stenosis [Unknown]
  - Neuralgia [Unknown]
  - Pain [Unknown]
  - Ankylosing spondylitis [Unknown]
